FAERS Safety Report 7218244-2 (Version None)
Quarter: 2011Q1

REPORT INFORMATION
  Report Type: 
  Country: None (occurrence: None)
  Receive Date: 20110110
  Receipt Date: 20110104
  Transmission Date: 20110831
  Serious: Yes (Other)
  Sender: FDA-Public Use
  Company Number: US-PFIZER INC-2009196846

PATIENT
  Sex: Female
  Weight: 77 kg

DRUGS (5)
  1. PREMARIN [Suspect]
     Indication: HORMONE REPLACEMENT THERAPY
     Dosage: UNK
     Route: 048
     Dates: start: 19930101, end: 20020101
  2. PREMPRO [Suspect]
     Indication: HORMONE REPLACEMENT THERAPY
     Dosage: UNK
     Route: 048
     Dates: start: 19930101, end: 20020101
  3. ZIAC [Concomitant]
     Indication: BLOOD PRESSURE
     Dosage: 2.5
     Dates: start: 19950101
  4. PROVERA [Suspect]
     Indication: HORMONE REPLACEMENT THERAPY
     Dosage: 2.5-10MG
     Route: 048
     Dates: start: 19930101, end: 20020101
  5. BISOPROLOL [Concomitant]
     Indication: DIURETIC THERAPY
     Dosage: 2.5/0.625MG
     Dates: start: 19950101

REACTIONS (1)
  - BREAST CANCER FEMALE [None]
